FAERS Safety Report 20511957 (Version 1)
Quarter: 2022Q1

REPORT INFORMATION
  Report Type: Spontaneous
  Country: GB (occurrence: GB)
  Receive Date: 20220224
  Receipt Date: 20220224
  Transmission Date: 20220423
  Serious: Yes (Other)
  Sender: FDA-Public Use
  Company Number: GB-MHRA-MED-202202221518209130-LSXL7

PATIENT
  Sex: Female

DRUGS (1)
  1. MUPIROCIN [Suspect]
     Active Substance: MUPIROCIN
     Indication: Cellulitis
     Dosage: UNK, (APPLY 2 TO 3 TIMES A DAY)
     Route: 065
     Dates: start: 20220222, end: 20220222

REACTIONS (3)
  - Sneezing [Recovered/Resolved]
  - Dyspnoea [Recovering/Resolving]
  - Adverse drug reaction [Not Recovered/Not Resolved]

NARRATIVE: CASE EVENT DATE: 20220222
